FAERS Safety Report 4899310-3 (Version None)
Quarter: 2006Q1

REPORT INFORMATION
  Report Type: 
  Country: None (occurrence: None)
  Receive Date: 20060106
  Receipt Date: 20051007
  Transmission Date: 20060701
  Serious: Yes (Other)
  Sender: FDA-Public Use
  Company Number: 200511996BWH

PATIENT
  Sex: Male

DRUGS (2)
  1. LEVITRA [Suspect]
     Indication: ERECTILE DYSFUNCTION
     Dosage: 20 MG, OW, ORAL
     Route: 048
     Dates: start: 20030101, end: 20050918
  2. MIDODRINE HCL [Concomitant]

REACTIONS (1)
  - BLOOD PRESSURE DECREASED [None]
